FAERS Safety Report 22243090 (Version 1)
Quarter: 2023Q2

REPORT INFORMATION
  Report Type: Spontaneous
  Country: US (occurrence: US)
  Receive Date: 20230424
  Receipt Date: 20230424
  Transmission Date: 20230722
  Serious: Yes (Hospitalization, Other)
  Sender: FDA-Public Use
  Company Number: US-ELI_LILLY_AND_COMPANY-US202304008446

PATIENT
  Sex: Female

DRUGS (12)
  1. HUMALOG MIX75/25 [Suspect]
     Active Substance: INSULIN LISPRO
     Indication: Diabetes mellitus
     Dosage: UNK UNK, UNKNOWN
     Route: 058
  2. HUMULIN R [Suspect]
     Active Substance: INSULIN HUMAN
     Indication: Diabetes mellitus
     Dosage: UNK UNK, UNKNOWN
     Route: 058
  3. TRULICITY [Suspect]
     Active Substance: DULAGLUTIDE
     Indication: Diabetes mellitus
     Dosage: 1.5 MG, UNKNOWN
     Route: 058
  4. TRULICITY [Suspect]
     Active Substance: DULAGLUTIDE
     Dosage: 0.75 MG, UNKNOWN
     Route: 058
  5. HUMALOG [Suspect]
     Active Substance: INSULIN LISPRO
     Indication: Type 2 diabetes mellitus
     Dosage: UNK UNK, UNKNOWN
     Route: 058
  6. HUMALOG [Suspect]
     Active Substance: INSULIN LISPRO
     Dosage: UNK UNK, UNKNOWN
     Route: 058
  7. IRON [Suspect]
     Active Substance: IRON
     Indication: Anaemia
     Dosage: UNK UNK, UNKNOWN
     Route: 065
  8. AMLODIPINE [Suspect]
     Active Substance: AMLODIPINE BESYLATE
     Indication: Product used for unknown indication
     Dosage: 25 MG, DAILY
     Route: 065
  9. NAPROXEN [Suspect]
     Active Substance: NAPROXEN
     Indication: Product used for unknown indication
     Dosage: UNK UNK, UNKNOWN
     Route: 065
  10. BYETTA [Concomitant]
     Active Substance: EXENATIDE
     Indication: Product used for unknown indication
  11. VICTOZA [Concomitant]
     Active Substance: LIRAGLUTIDE
     Indication: Product used for unknown indication
  12. JANUVIA [Concomitant]
     Active Substance: SITAGLIPTIN PHOSPHATE
     Indication: Product used for unknown indication

REACTIONS (23)
  - Pneumonia [Unknown]
  - COVID-19 [Unknown]
  - Meniscus injury [Unknown]
  - Peripheral swelling [Unknown]
  - Joint swelling [Unknown]
  - Impaired gastric emptying [Unknown]
  - Injection site haematoma [Unknown]
  - Injection site infection [Unknown]
  - Blepharitis [Unknown]
  - Swelling of eyelid [Unknown]
  - Lacrimation increased [Unknown]
  - Eye oedema [Unknown]
  - Depression [Unknown]
  - Thermal burn [Unknown]
  - Neuropathy peripheral [Unknown]
  - Blood glucose increased [Unknown]
  - Glycosylated haemoglobin increased [Unknown]
  - Nausea [Recovered/Resolved]
  - Constipation [Unknown]
  - Weight decreased [Unknown]
  - Injection site pain [Unknown]
  - Non-alcoholic fatty liver [Unknown]
  - Blood pressure increased [Unknown]

NARRATIVE: CASE EVENT DATE: 20060101
